FAERS Safety Report 12199127 (Version 1)
Quarter: 2016Q1

REPORT INFORMATION
  Report Type: Spontaneous
  Country: IT (occurrence: IT)
  Receive Date: 20160322
  Receipt Date: 20160322
  Transmission Date: 20160526
  Serious: Yes (Other)
  Sender: FDA-Public Use
  Company Number: IT-ASTRAZENECA-2016SE30250

PATIENT
  Age: 23159 Day
  Sex: Male
  Weight: 99 kg

DRUGS (6)
  1. LASIX [Concomitant]
     Active Substance: FUROSEMIDE
     Route: 048
  2. LUVION [Concomitant]
     Active Substance: CANRENONE
     Route: 048
  3. BRILIQUE [Suspect]
     Active Substance: TICAGRELOR
     Indication: ACUTE CORONARY SYNDROME
     Route: 048
     Dates: start: 20160127, end: 20160311
  4. CARDIOASPIRIN [Concomitant]
     Active Substance: ASPIRIN
     Route: 048
  5. TRIATEC [Concomitant]
     Active Substance: RAMIPRIL
     Route: 048
  6. TORVAST (ATORVASTATIN) [Concomitant]
     Active Substance: ATORVASTATIN
     Route: 048

REACTIONS (2)
  - Dyspnoea exertional [Unknown]
  - Angina pectoris [Unknown]

NARRATIVE: CASE EVENT DATE: 20160311
